FAERS Safety Report 7749218-0 (Version None)
Quarter: 2011Q3

REPORT INFORMATION
  Report Type: 
  Country: None (occurrence: None)
  Receive Date: 20110914
  Receipt Date: 20110831
  Transmission Date: 20111222
  Serious: Yes (Hospitalization, Other)
  Sender: FDA-Public Use
  Company Number: GB-US-EMD SERONO, INC.-230267K09GBR

PATIENT
  Sex: Female

DRUGS (3)
  1. REBIF [Suspect]
     Route: 058
     Dates: start: 20091101, end: 20110719
  2. REBIF [Suspect]
     Indication: SECONDARY PROGRESSIVE MULTIPLE SCLEROSIS
     Route: 058
     Dates: end: 20090724
  3. REBIF [Suspect]
     Route: 058
     Dates: start: 20090724

REACTIONS (8)
  - HEADACHE [None]
  - DRUG INEFFECTIVE [None]
  - PAIN IN EXTREMITY [None]
  - DIZZINESS [None]
  - ABASIA [None]
  - BODY TEMPERATURE INCREASED [None]
  - DIPLEGIA [None]
  - FLUSHING [None]
